FAERS Safety Report 6154087-9 (Version None)
Quarter: 2009Q2

REPORT INFORMATION
  Report Type: 
  Country: None (occurrence: None)
  Receive Date: 20090414
  Receipt Date: 20090408
  Transmission Date: 20091009
  Serious: Yes (Other)
  Sender: FDA-Public Use
  Company Number: DE-WYE-G03481809

PATIENT
  Sex: Female

DRUGS (2)
  1. TREVILOR [Suspect]
     Route: 048
     Dates: start: 20070101, end: 20090301
  2. TREVILOR [Suspect]
     Route: 048
     Dates: start: 20090301

REACTIONS (4)
  - ANXIETY [None]
  - CONDITION AGGRAVATED [None]
  - DRUG WITHDRAWAL SYNDROME [None]
  - SUICIDAL IDEATION [None]
